FAERS Safety Report 20906790 (Version 1)
Quarter: 2022Q2

REPORT INFORMATION
  Report Type: Spontaneous
  Country: BG (occurrence: BG)
  Receive Date: 20220602
  Receipt Date: 20220602
  Transmission Date: 20220721
  Serious: Yes (Hospitalization)
  Sender: FDA-Public Use
  Company Number: BG-NOVARTISPH-NVSC2022BG123805

PATIENT
  Age: 52 Year
  Sex: Male

DRUGS (3)
  1. SECUKINUMAB [Suspect]
     Active Substance: SECUKINUMAB
     Indication: Psoriasis
     Dosage: UNK
     Route: 065
     Dates: start: 201901, end: 202112
  2. DIETARY SUPPLEMENT\HERBALS\MILK THISTLE [Concomitant]
     Active Substance: DIETARY SUPPLEMENT\HERBALS\MILK THISTLE
     Indication: Hepatic steatosis
     Dosage: 2 DOSAGE FORM, BID
     Route: 048
  3. FAMOTIDINE [Concomitant]
     Active Substance: FAMOTIDINE
     Indication: Hepatic steatosis
     Dosage: 1 DOSAGE FORM, QD (ONCE DAILY IN THE EVENG)
     Route: 048

REACTIONS (2)
  - Skin plaque [Unknown]
  - Disease progression [Unknown]

NARRATIVE: CASE EVENT DATE: 20210601
